FAERS Safety Report 14847278 (Version 9)
Quarter: 2023Q4

REPORT INFORMATION
  Report Type: Spontaneous
  Country: US (occurrence: US)
  Receive Date: 20180504
  Receipt Date: 20231020
  Transmission Date: 20240109
  Serious: Yes (Other)
  Sender: FDA-Public Use
  Company Number: US-PFIZER INC-2018184922

PATIENT
  Age: 72 Year
  Sex: Female

DRUGS (2)
  1. PREMARIN [Suspect]
     Active Substance: ESTROGENS, CONJUGATED
     Indication: Oestrogen therapy
     Dosage: 0.625 MG, 1X/DAY
     Dates: start: 1993
  2. PREMARIN [Suspect]
     Active Substance: ESTROGENS, CONJUGATED
     Indication: Menopausal symptoms
     Dosage: 0.625 MG, 1X/DAY
     Route: 048

REACTIONS (6)
  - Drug dependence [Unknown]
  - Product administration error [Unknown]
  - Product storage error [Unknown]
  - Paraesthesia [Unknown]
  - Fibromyalgia [Unknown]
  - Adjustment disorder [Unknown]

NARRATIVE: CASE EVENT DATE: 19930101
